FAERS Safety Report 14742076 (Version 1)
Quarter: 2018Q2

REPORT INFORMATION
  Report Type: Spontaneous
  Country: RO (occurrence: RO)
  Receive Date: 20180410
  Receipt Date: 20180410
  Transmission Date: 20180711
  Serious: Yes (Hospitalization, Other)
  Sender: FDA-Public Use
  Company Number: RO-MYLANLABS-2018M1022355

PATIENT
  Age: 50 Year
  Sex: Female

DRUGS (8)
  1. MESALAZINE [Suspect]
     Active Substance: MESALAMINE
     Indication: COLITIS ULCERATIVE
     Route: 048
  2. AZATHIOPRINE. [Suspect]
     Active Substance: AZATHIOPRINE
     Indication: COLITIS ULCERATIVE
     Route: 065
  3. CIPROFLOXACIN. [Suspect]
     Active Substance: CIPROFLOXACIN
     Indication: CLOSTRIDIUM DIFFICILE INFECTION
     Route: 065
  4. VANCOMYCIN [Suspect]
     Active Substance: VANCOMYCIN
     Dosage: REINITIATED AND THEN AGAIN DISCONTINUED
     Route: 048
  5. METRONIDAZOLE. [Suspect]
     Active Substance: METRONIDAZOLE
     Indication: COLITIS ULCERATIVE
     Dosage: DISCONTINUED
     Route: 048
  6. PREDNISONE. [Suspect]
     Active Substance: PREDNISONE
     Indication: COLITIS ULCERATIVE
     Route: 048
  7. METRONIDAZOLE. [Suspect]
     Active Substance: METRONIDAZOLE
     Route: 050
  8. VANCOMYCIN [Suspect]
     Active Substance: VANCOMYCIN
     Indication: COLITIS ULCERATIVE
     Dosage: DISCONTINUED LATER
     Route: 048

REACTIONS (5)
  - Thrombocytopenia [Recovering/Resolving]
  - Hypokalaemia [Recovering/Resolving]
  - Hypoalbuminaemia [Recovering/Resolving]
  - Clostridium difficile infection [Recovering/Resolving]
  - Hypocalcaemia [Recovering/Resolving]
